FAERS Safety Report 22262514 (Version 3)
Quarter: 2023Q4

REPORT INFORMATION
  Report Type: Spontaneous
  Country: CA (occurrence: CA)
  Receive Date: 20230428
  Receipt Date: 20231010
  Transmission Date: 20240110
  Serious: Yes (Other)
  Sender: FDA-Public Use
  Company Number: CA-CELLTRION INC.-2019CA019689

PATIENT

DRUGS (50)
  1. INFLECTRA [Suspect]
     Active Substance: INFLIXIMAB-DYYB
     Indication: Crohn^s disease
     Dosage: 305 MG, 0, 2, 6, THEN EVERY 8 WEEKS
     Route: 042
     Dates: start: 20190110, end: 20190110
  2. INFLECTRA [Suspect]
     Active Substance: INFLIXIMAB-DYYB
     Dosage: 305 MG, 0, 2, 6, THEN EVERY 8 WEEKS
     Route: 042
     Dates: start: 20190124
  3. INFLECTRA [Suspect]
     Active Substance: INFLIXIMAB-DYYB
     Dosage: 305 MG, 0, 2, 6, THEN EVERY 8 WEEKS
     Route: 042
     Dates: start: 20190220
  4. INFLECTRA [Suspect]
     Active Substance: INFLIXIMAB-DYYB
     Dosage: 400 MG, 2, 6, THEN EVERY 8 WEEKS (INDUCTION AT WEEKS 2 AND 6, THEN EVERY 8 WEEKS)
     Route: 042
     Dates: start: 20190314
  5. INFLECTRA [Suspect]
     Active Substance: INFLIXIMAB-DYYB
     Dosage: 305 MG, 0, 2, 6, THEN EVERY 8 WEEKS
     Route: 042
     Dates: start: 20190424
  6. INFLECTRA [Suspect]
     Active Substance: INFLIXIMAB-DYYB
     Dosage: 305 MG, 0, 2, 6, THEN EVERY 8 WEEKS
     Route: 042
     Dates: start: 20190620
  7. INFLECTRA [Suspect]
     Active Substance: INFLIXIMAB-DYYB
     Dosage: 305 MG, 0, 2, 6, THEN EVERY 8 WEEKS
     Route: 042
     Dates: start: 20190816
  8. INFLECTRA [Suspect]
     Active Substance: INFLIXIMAB-DYYB
     Dosage: 305 MG, 0, 2, 6, THEN EVERY 8 WEEKS
     Route: 042
     Dates: start: 20191010
  9. INFLECTRA [Suspect]
     Active Substance: INFLIXIMAB-DYYB
     Dosage: 305 MG, 0, 2, 6, THEN EVERY 8 WEEKS
     Route: 042
     Dates: start: 20191205
  10. INFLECTRA [Suspect]
     Active Substance: INFLIXIMAB-DYYB
     Dosage: 305 MG, 0, 2, 6, THEN EVERY 8 WEEKS
     Route: 042
     Dates: start: 20200401
  11. INFLECTRA [Suspect]
     Active Substance: INFLIXIMAB-DYYB
     Dosage: 305 MG, 0, 2, 6, THEN EVERY 8 WEEKS
     Route: 042
     Dates: start: 20200528
  12. INFLECTRA [Suspect]
     Active Substance: INFLIXIMAB-DYYB
     Dosage: 305 MG, EVERY 8 WEEKS
     Route: 042
     Dates: start: 20200903
  13. INFLECTRA [Suspect]
     Active Substance: INFLIXIMAB-DYYB
     Dosage: 315 MG (5 MG/KG), EVERY 8 WEEKS (ROUNDED TO SUPERIOR VIAL)
     Route: 042
     Dates: start: 20201029
  14. INFLECTRA [Suspect]
     Active Substance: INFLIXIMAB-DYYB
     Dosage: 5 MG/KG,  EVERY 8 WEEKS (ROUNDED TO SUPERIOR VIAL)
     Route: 042
     Dates: start: 20201029
  15. INFLECTRA [Suspect]
     Active Substance: INFLIXIMAB-DYYB
     Dosage: 5 MG/KG ROUNDED TO SUPERIOR VIAL, EVERY 8 WEEKS
     Route: 042
     Dates: start: 20201223, end: 20201223
  16. INFLECTRA [Suspect]
     Active Substance: INFLIXIMAB-DYYB
     Dosage: 5 MG/KG ROUNDED TO SUPERIOR VIAL, EVERY 8 WEEKS
     Route: 042
     Dates: start: 20210124, end: 202102
  17. INFLECTRA [Suspect]
     Active Substance: INFLIXIMAB-DYYB
     Dosage: 5 MG/KG EVERY 8 WEEKS (5MG/KG ROUNDED TO SUPERIOR VIAL)
     Route: 042
     Dates: start: 20210415
  18. INFLECTRA [Suspect]
     Active Substance: INFLIXIMAB-DYYB
     Dosage: 5 MG/KG , EVERY 8 WEEKS,ROUNDED TO SUPERIOR VIAL
     Route: 042
     Dates: start: 20210415
  19. INFLECTRA [Suspect]
     Active Substance: INFLIXIMAB-DYYB
     Dosage: UNK
     Route: 042
     Dates: start: 20210609
  20. INFLECTRA [Suspect]
     Active Substance: INFLIXIMAB-DYYB
     Dosage: UNK
     Route: 042
     Dates: start: 20210804
  21. INFLECTRA [Suspect]
     Active Substance: INFLIXIMAB-DYYB
     Dosage: 5 MG/KG EVERY 8 WEEKS (5MG/KG ROUNDED TO SUPERIOR VIAL)
     Route: 042
     Dates: start: 20210928
  22. INFLECTRA [Suspect]
     Active Substance: INFLIXIMAB-DYYB
     Dosage: 5 MG/KG EVERY 8 WEEKS (5MG/KG ROUNDED TO SUPERIOR VIAL)
     Route: 042
     Dates: start: 20211201
  23. INFLECTRA [Suspect]
     Active Substance: INFLIXIMAB-DYYB
     Dosage: 5 MG/KG EVERY 8 WEEKS (5MG/KG ROUNDED TO SUPERIOR VIAL)
     Route: 042
     Dates: start: 20220125
  24. INFLECTRA [Suspect]
     Active Substance: INFLIXIMAB-DYYB
     Dosage: 5 MG/KG EVERY 8 WEEKS (5MG/KG ROUNDED TO SUPERIOR VIAL)
     Route: 042
     Dates: start: 20220525
  25. INFLECTRA [Suspect]
     Active Substance: INFLIXIMAB-DYYB
     Dosage: 5 MG/KG EVERY 8 WEEKS (5MG/KG ROUNDED TO SUPERIOR VIAL)
     Route: 042
     Dates: start: 20220730
  26. INFLECTRA [Suspect]
     Active Substance: INFLIXIMAB-DYYB
     Dosage: 5 MG/KG EVERY 8 WEEKS (5MG/KG ROUNDED TO SUPERIOR VIAL)
     Route: 042
     Dates: start: 20220921
  27. INFLECTRA [Suspect]
     Active Substance: INFLIXIMAB-DYYB
     Dosage: 5 MG/KG EVERY 4 WEEKS (5MG/KG ROUNDED TO SUPERIOR VIAL)
     Route: 042
     Dates: start: 20221027
  28. INFLECTRA [Suspect]
     Active Substance: INFLIXIMAB-DYYB
     Dosage: 5 MG/KG EVERY 4 WEEKS (5MG/KG ROUNDED TO SUPERIOR VIAL)
     Route: 042
     Dates: start: 20221123
  29. INFLECTRA [Suspect]
     Active Substance: INFLIXIMAB-DYYB
     Dosage: 5 MG/KG, EVERY 4 WEEKS, ROUNDED UP TO NEXT VIAL
     Route: 042
     Dates: start: 20230221
  30. INFLECTRA [Suspect]
     Active Substance: INFLIXIMAB-DYYB
     Dosage: 5 MG/KG, EVERY 4 WEEKS, ROUNDED UP TO NEXT VIAL
     Route: 042
     Dates: start: 20230221
  31. INFLECTRA [Suspect]
     Active Substance: INFLIXIMAB-DYYB
     Dosage: 5 MG/KG, EVERY 4 WEEKS, ROUNDED UP TO NEXT VIAL
     Route: 042
     Dates: start: 20230322
  32. INFLECTRA [Suspect]
     Active Substance: INFLIXIMAB-DYYB
     Dosage: 5 MG/KG, EVERY 4 WEEKS, ROUNDED UP TO NEXT VIAL
     Route: 042
     Dates: start: 20230322
  33. INFLECTRA [Suspect]
     Active Substance: INFLIXIMAB-DYYB
     Dosage: 400 MG (5 MG/KG, ROUND TO HIGHER VIAL) EVERY 4 WEEKS
     Route: 042
     Dates: start: 20230419
  34. INFLECTRA [Suspect]
     Active Substance: INFLIXIMAB-DYYB
     Dosage: 400 MG (5 MG/KG, ROUND TO HIGHER VIAL) EVERY 4 WEEKS
     Route: 042
     Dates: start: 20230419
  35. INFLECTRA [Suspect]
     Active Substance: INFLIXIMAB-DYYB
     Dosage: 400 MG, (5MG/KG , ROUNDED AT UPPER VIAL) EVERY 4 WEEKS.
     Dates: start: 20230518
  36. INFLECTRA [Suspect]
     Active Substance: INFLIXIMAB-DYYB
     Dosage: 5 MG/KG, EVERY 4 WEEKS
     Route: 042
     Dates: start: 20230906
  37. INFLECTRA [Suspect]
     Active Substance: INFLIXIMAB-DYYB
     Dosage: 5MG/ KG, EVERY 4 WEEKS (400 MG AFTER 3 WEEKS AND 6 DAYS)
     Route: 042
     Dates: start: 20231003
  38. AZATHIOPRINE [Concomitant]
     Active Substance: AZATHIOPRINE
     Indication: Crohn^s disease
     Dosage: 50 MG, DAILY
     Route: 048
     Dates: start: 20190311
  39. AZATHIOPRINE [Concomitant]
     Active Substance: AZATHIOPRINE
     Dosage: 50 MG, 1X/DAY
     Route: 048
     Dates: start: 20190311
  40. CIPROFLOXACIN [Concomitant]
     Active Substance: CIPROFLOXACIN
     Indication: Anal fistula
     Dosage: 500 MG, 2X/DAY
     Route: 048
  41. FOLIC ACID [Concomitant]
     Active Substance: FOLIC ACID
     Dosage: UNK
     Route: 065
  42. FOLIC ACID [Concomitant]
     Active Substance: FOLIC ACID
     Dosage: 1 DF, DOSAGE INFO: UNKNOWN
     Route: 065
  43. CHOLECALCIFEROL [Concomitant]
     Active Substance: CHOLECALCIFEROL
     Dosage: UNK
  44. METHOTREXATE [Concomitant]
     Active Substance: METHOTREXATE
     Dosage: 25 MG, WEEKLY
     Route: 065
     Dates: start: 201402
  45. METHOTREXATE [Concomitant]
     Active Substance: METHOTREXATE
     Dosage: 15 MG, WEEKLY
     Route: 065
  46. METHOTREXATE [Concomitant]
     Active Substance: METHOTREXATE
     Dosage: 1 DF, DOSAGE INFO: UNKNOWN
     Route: 065
  47. METRONIDAZOLE [Concomitant]
     Active Substance: METRONIDAZOLE
     Indication: Anal fistula
     Dosage: 500 MG, 2X/DAY
     Route: 048
  48. PANTOPRAZOLE [Concomitant]
     Active Substance: PANTOPRAZOLE
     Dosage: UNK
  49. PREDNISONE [Concomitant]
     Active Substance: PREDNISONE
     Dosage: UNK
  50. SOLU-MEDROL [Concomitant]
     Active Substance: METHYLPREDNISOLONE SODIUM SUCCINATE
     Dosage: UNK
     Dates: start: 20181220

REACTIONS (20)
  - Condition aggravated [Not Recovered/Not Resolved]
  - Dizziness [Recovered/Resolved]
  - Oropharyngeal pain [Unknown]
  - Rhinorrhoea [Unknown]
  - Productive cough [Unknown]
  - Headache [Unknown]
  - Ear pain [Unknown]
  - Urinary tract infection [Recovered/Resolved]
  - Dysuria [Recovered/Resolved]
  - Back pain [Unknown]
  - Condition aggravated [Recovered/Resolved]
  - COVID-19 [Unknown]
  - Drug level below therapeutic [Unknown]
  - Dermatitis acneiform [Not Recovered/Not Resolved]
  - Abdominal distension [Unknown]
  - Maternal exposure during pregnancy [Unknown]
  - Off label use [Unknown]
  - Off label use [Unknown]
  - Intentional product use issue [Unknown]
  - Inappropriate schedule of product administration [Unknown]

NARRATIVE: CASE EVENT DATE: 20190124
